FAERS Safety Report 11109877 (Version 1)
Quarter: 2015Q2

REPORT INFORMATION
  Report Type: Spontaneous
  Country: US (occurrence: US)
  Receive Date: 20150513
  Receipt Date: 20150513
  Transmission Date: 20150821
  Serious: No
  Sender: FDA-Public Use
  Company Number: US-PFIZER INC-2015153835

PATIENT
  Age: 63 Year
  Sex: Male

DRUGS (10)
  1. TYLENOL [Concomitant]
     Active Substance: ACETAMINOPHEN
     Indication: HEADACHE
  2. LYRICA [Suspect]
     Active Substance: PREGABALIN
     Indication: BACK PAIN
     Dosage: 150 MG, 2X/DAY
     Route: 048
     Dates: start: 2013
  3. TRAMADOL [Concomitant]
     Active Substance: TRAMADOL
     Dosage: 100 MG, DAILY (50MG 2 A DAY)
     Route: 048
  4. QUINAPRIL [Concomitant]
     Active Substance: QUINAPRIL\QUINAPRIL HYDROCHLORIDE
     Indication: BLOOD PRESSURE ABNORMAL
     Dosage: 20 MG, 2X/DAY (MORNING AND NIGHT)
  5. PREVACID [Concomitant]
     Active Substance: LANSOPRAZOLE
     Indication: DYSPEPSIA
     Dosage: UNK MG, 1X/DAY
     Route: 048
  6. AMLODIPINE [Concomitant]
     Active Substance: AMLODIPINE BESYLATE
     Indication: BLOOD PRESSURE ABNORMAL
     Dosage: 5 MG, 1X/DAY
     Route: 048
  7. FUROSEMIDE. [Concomitant]
     Active Substance: FUROSEMIDE
     Indication: HYPERTENSION
     Dosage: 80 MG, 2X/DAY (40 MG, 2 IN MORNING, 2 AT NIGHT)
  8. TYLENOL [Concomitant]
     Active Substance: ACETAMINOPHEN
     Indication: PAIN
     Dosage: 1000 MG, 2X/DAY (500 MG, 2 TABLETS TWICE A DAY)
     Route: 048
  9. WARFARIN [Concomitant]
     Active Substance: WARFARIN
     Indication: ANTICOAGULANT THERAPY
     Dosage: 7.5 MG, 1X/DAY
     Route: 048
  10. FIBER [Concomitant]
     Active Substance: PSYLLIUM HUSK
     Dosage: UNK MG, 2X/DAY (3 IN MORNING AND 3 AT NIGHT)
     Route: 048

REACTIONS (3)
  - Dysstasia [Unknown]
  - Pain [Not Recovered/Not Resolved]
  - Gait disturbance [Unknown]

NARRATIVE: CASE EVENT DATE: 2013
